FAERS Safety Report 9132248 (Version 2)
Quarter: 2013Q2

REPORT INFORMATION
  Report Type: Report from Study
  Country: CA (occurrence: CA)
  Receive Date: 20130107
  Receipt Date: 20130614
  Transmission Date: 20140414
  Serious: Yes (Death, Hospitalization)
  Sender: FDA-Public Use
  Company Number: CA-INCYTE CORPORATION-2012IN002741

PATIENT
  Age: 70 Year
  Sex: Male

DRUGS (1)
  1. JAKAVI [Suspect]
     Indication: MYELOFIBROSIS
     Dosage: 15 MG, BID
     Route: 048
     Dates: start: 20120815

REACTIONS (4)
  - Death [Fatal]
  - Pulmonary haemorrhage [Unknown]
  - Pneumonitis [Unknown]
  - Diarrhoea [Not Recovered/Not Resolved]
